FAERS Safety Report 5675738-9 (Version None)
Quarter: 2008Q1

REPORT INFORMATION
  Report Type: 
  Country: None (occurrence: None)
  Receive Date: 20080321
  Receipt Date: 20080314
  Transmission Date: 20080703
  Serious: Yes (Other)
  Sender: FDA-Public Use
  Company Number: PHEH2008US02789

PATIENT
  Age: 46 Year
  Sex: Female

DRUGS (1)
  1. RECLAST [Suspect]
     Dates: start: 20080130

REACTIONS (6)
  - ARTHRALGIA [None]
  - CHILLS [None]
  - JOINT SWELLING [None]
  - MONARTHRITIS [None]
  - PARAESTHESIA [None]
  - SYNOVITIS [None]
